FAERS Safety Report 13950788 (Version 1)
Quarter: 2017Q3

REPORT INFORMATION
  Report Type: Spontaneous
  Country: US (occurrence: US)
  Receive Date: 20170908
  Receipt Date: 20170908
  Transmission Date: 20171128
  Serious: No
  Sender: FDA-Public Use
  Company Number: US-ROCHE-1131550

PATIENT
  Age: 67 Year
  Sex: Female

DRUGS (4)
  1. ALLOPURINOL. [Concomitant]
     Active Substance: ALLOPURINOL
     Route: 065
  2. LASIX [Concomitant]
     Active Substance: FUROSEMIDE
  3. DECADRON [Concomitant]
     Active Substance: DEXAMETHASONE
     Dosage: 40 MG DAILY FOR 5 DAYS
     Route: 048
  4. RITUXAN [Suspect]
     Active Substance: RITUXIMAB
     Indication: LYMPHOMA
     Route: 065
     Dates: start: 19990601

REACTIONS (3)
  - Vomiting [Unknown]
  - Lung infiltration [Unknown]
  - Nausea [Unknown]

NARRATIVE: CASE EVENT DATE: 19990624
